FAERS Safety Report 5638922-6 (Version None)
Quarter: 2008Q1

REPORT INFORMATION
  Report Type: 
  Country: None (occurrence: None)
  Receive Date: 20080222
  Receipt Date: 20080211
  Transmission Date: 20080703
  Serious: Yes (Hospitalization)
  Sender: FDA-Public Use
  Company Number: 100#08#2008-00815

PATIENT
  Age: 29 Year
  Sex: Male

DRUGS (3)
  1. DICLOFENAC (DICLOFENAC) [Suspect]
     Indication: PAIN
     Dosage: INTRAMUSCULAR; ONCE
     Route: 030
  2. DICLOFENAC (DICLOFENAC) [Suspect]
     Indication: ULCER
     Dosage: INTRAMUSCULAR; ONCE
     Route: 030
  3. ANTIVENIN (ANTIVENIN) [Concomitant]

REACTIONS (2)
  - EMBOLIA CUTIS MEDICAMENTOSA [None]
  - STAPHYLOCOCCAL SKIN INFECTION [None]
